FAERS Safety Report 13772021 (Version 2)
Quarter: 2017Q3

REPORT INFORMATION
  Report Type: Report from Study
  Country: US (occurrence: US)
  Receive Date: 20170720
  Receipt Date: 20170808
  Transmission Date: 20171127
  Serious: Yes (Hospitalization, Other)
  Sender: FDA-Public Use
  Company Number: PHEH2017US021664

PATIENT
  Sex: Male

DRUGS (1)
  1. JADENU [Suspect]
     Active Substance: DEFERASIROX
     Indication: MYELODYSPLASTIC SYNDROME
     Dosage: 360 MG, UNK
     Route: 065

REACTIONS (4)
  - Hyperbilirubinaemia [Unknown]
  - Malaise [Unknown]
  - Diarrhoea [Unknown]
  - Leukaemic infiltration extramedullary [Unknown]
